FAERS Safety Report 9828775 (Version 2)
Quarter: 2016Q2

REPORT INFORMATION
  Report Type: Report from Study
  Country: US (occurrence: US)
  Receive Date: 20140117
  Receipt Date: 20160621
  Transmission Date: 20160815
  Serious: Yes (Death)
  Sender: FDA-Public Use
  Company Number: US-ROCHE-1335567

PATIENT
  Sex: Male

DRUGS (2)
  1. XELODA [Suspect]
     Active Substance: CAPECITABINE
     Indication: HEPATIC CANCER
  2. XELODA [Suspect]
     Active Substance: CAPECITABINE
     Indication: CHOLANGIOCARCINOMA
     Dosage: 14 DAYS ON AND 7 DAYS OFF
     Route: 048

REACTIONS (2)
  - Off label use [Unknown]
  - Death [Fatal]
